FAERS Safety Report 6136159-8 (Version None)
Quarter: 2009Q1

REPORT INFORMATION
  Report Type: 
  Country: None (occurrence: None)
  Receive Date: 20090330
  Receipt Date: 20090325
  Transmission Date: 20090719
  Serious: Yes (Life-Threatening)
  Sender: FDA-Public Use
  Company Number: JP-ASTRAZENECA-2008AP04068

PATIENT
  Age: 32 Year
  Sex: Male

DRUGS (3)
  1. OMEPRAL TABLETS [Suspect]
     Indication: GASTRIC ULCER
     Route: 048
     Dates: start: 20080212, end: 20080327
  2. LAXOBERON [Concomitant]
     Dosage: DOSE UNKNOWN
     Route: 048
  3. TAURINE [Concomitant]
     Dosage: DOSE UNKNOWN
     Route: 048

REACTIONS (1)
  - VANISHING BILE DUCT SYNDROME [None]
